FAERS Safety Report 10086220 (Version 1)
Quarter: 2014Q2

REPORT INFORMATION
  Report Type: Spontaneous
  Country: US (occurrence: None)
  Receive Date: 20140417
  Receipt Date: 20140417
  Transmission Date: 20141212
  Serious: No
  Sender: FDA-Public Use
  Company Number: None

PATIENT
  Age: 37 Year
  Sex: Female
  Weight: 74.84 kg

DRUGS (1)
  1. LASTACAFT [Suspect]
     Indication: EYE ALLERGY
     Dosage: 1 DROP ONCE DAILY INTO THE EYE

REACTIONS (4)
  - Dry eye [None]
  - Ocular hyperaemia [None]
  - Eye pain [None]
  - Conjunctivitis [None]
